FAERS Safety Report 8084723-1 (Version None)
Quarter: 2012Q1

REPORT INFORMATION
  Report Type: 
  Country: None (occurrence: None)
  Receive Date: 20120128
  Receipt Date: 20110311
  Transmission Date: 20120608
  Serious: No
  Sender: FDA-Public Use
  Company Number: US-ABBOTT-11P-163-0711049-00

PATIENT
  Sex: Female
  Weight: 78.996 kg

DRUGS (5)
  1. ASPIRIN [Concomitant]
     Indication: SUPPLEMENTATION THERAPY
  2. HYDROCHLOROTHIAZIDE [Concomitant]
     Indication: HYPERTENSION
  3. CALCIUM [Concomitant]
     Indication: SUPPLEMENTATION THERAPY
  4. FOLIC ACID [Concomitant]
     Indication: SUPPLEMENTATION THERAPY
  5. HUMIRA [Suspect]
     Indication: RHEUMATOID ARTHRITIS
     Dates: start: 20020101

REACTIONS (3)
  - NAUSEA [None]
  - SEBORRHOEA [None]
  - HEADACHE [None]
